FAERS Safety Report 18364494 (Version 1)
Quarter: 2020Q4

REPORT INFORMATION
  Report Type: Spontaneous
  Country: US (occurrence: US)
  Receive Date: 20201008
  Receipt Date: 20201008
  Transmission Date: 20210114
  Serious: Yes (Hospitalization)
  Sender: FDA-Public Use
  Company Number: None

PATIENT
  Sex: Female

DRUGS (28)
  1. CEPHALEXIN. [Concomitant]
     Active Substance: CEPHALEXIN
  2. DICLOXACIL [Concomitant]
  3. GABAPENTIN. [Concomitant]
     Active Substance: GABAPENTIN
  4. ATORVASTATIN [Concomitant]
     Active Substance: ATORVASTATIN
  5. BUMATANIDE [Concomitant]
  6. FUROSEMIDE. [Concomitant]
     Active Substance: FUROSEMIDE
  7. NYSTOP [Concomitant]
     Active Substance: NYSTATIN
  8. SSD [Concomitant]
     Active Substance: SILVER SULFADIAZINE
  9. NAMZARIC [Concomitant]
     Active Substance: DONEPEZIL HYDROCHLORIDE\MEMANTINE HYDROCHLORIDE
  10. PHENYTOIN EX [Concomitant]
  11. LEVOFLOXACIN. [Concomitant]
     Active Substance: LEVOFLOXACIN
  12. KISQALI [Suspect]
     Active Substance: RIBOCICLIB
  13. FOLIC ACID. [Concomitant]
     Active Substance: FOLIC ACID
  14. CEFIXIME. [Concomitant]
     Active Substance: CEFIXIME
  15. LAMOTRIGINE. [Concomitant]
     Active Substance: LAMOTRIGINE
  16. APAP/CODEINE [Concomitant]
     Active Substance: ACETAMINOPHEN\CODEINE PHOSPHATE
  17. CIPROFLOXACIN. [Concomitant]
     Active Substance: CIPROFLOXACIN
  18. FLUCONAZOLE. [Concomitant]
     Active Substance: FLUCONAZOLE
  19. ONDANSETRON [Concomitant]
     Active Substance: ONDANSETRON
  20. MELOXICAM. [Concomitant]
     Active Substance: MELOXICAM
  21. LETROZOLE. [Concomitant]
     Active Substance: LETROZOLE
  22. LISINOPRIL. [Concomitant]
     Active Substance: LISINOPRIL
  23. MELOZICAM [Concomitant]
  24. PHENYTOIN. [Concomitant]
     Active Substance: PHENYTOIN
  25. AMLODIPINE [Concomitant]
     Active Substance: AMLODIPINE BESYLATE
  26. ASA/DIPYRIDA [Concomitant]
  27. METOPROLOL TARTRATE. [Concomitant]
     Active Substance: METOPROLOL TARTRATE
  28. KETOCONAZOLE. [Concomitant]
     Active Substance: KETOCONAZOLE

REACTIONS (2)
  - Therapy interrupted [None]
  - Hospitalisation [None]
